FAERS Safety Report 4869284-X (Version None)
Quarter: 2005Q4

REPORT INFORMATION
  Report Type: 
  Country: None (occurrence: None)
  Receive Date: 20051230
  Receipt Date: 20051221
  Transmission Date: 20060501
  Serious: Yes (Death)
  Sender: FDA-Public Use
  Company Number: US-JNJFOC-20051205406

PATIENT
  Sex: Female
  Weight: 45.36 kg

DRUGS (1)
  1. ORTHO EVRA [Suspect]
     Indication: HORMONE REPLACEMENT THERAPY
     Route: 062
     Dates: start: 20010101, end: 20030101

REACTIONS (3)
  - AORTIC DISSECTION [None]
  - OFF LABEL USE [None]
  - STREPTOCOCCAL BACTERAEMIA [None]
